FAERS Safety Report 18503967 (Version 2)
Quarter: 2023Q2

REPORT INFORMATION
  Report Type: Report from Study
  Country: US (occurrence: US)
  Receive Date: 20201114
  Receipt Date: 20230517
  Transmission Date: 20230722
  Serious: Yes (Other)
  Sender: FDA-Public Use
  Company Number: US-SHIRE-US202000851AA

PATIENT
  Sex: Female

DRUGS (2)
  1. VELAGLUCERASE ALFA [Suspect]
     Active Substance: VELAGLUCERASE ALFA
     Indication: Gaucher^s disease
     Dosage: UNK UNK, Q2WEEKS
     Route: 042
     Dates: start: 20110920
  2. VELAGLUCERASE ALFA [Suspect]
     Active Substance: VELAGLUCERASE ALFA
     Dosage: 15 DOSAGE FORM, 2/MONTH
     Route: 042
     Dates: start: 20111021

REACTIONS (5)
  - General physical health deterioration [Not Recovered/Not Resolved]
  - Illness [Recovering/Resolving]
  - Campylobacter infection [Recovering/Resolving]
  - COVID-19 [Recovering/Resolving]
  - Product dose omission issue [Recovering/Resolving]
